FAERS Safety Report 5017505-5 (Version None)
Quarter: 2006Q2

REPORT INFORMATION
  Report Type: 
  Country: None (occurrence: None)
  Receive Date: 20060601
  Receipt Date: 20060601
  Transmission Date: 20061013
  Serious: Yes (Hospitalization)
  Sender: FDA-Public Use
  Company Number: None

PATIENT
  Age: 66 Year
  Sex: Male
  Weight: 141.9 kg

DRUGS (1)
  1. WARFARIN SODIUM [Suspect]

REACTIONS (1)
  - INTERNATIONAL NORMALISED RATIO INCREASED [None]
